FAERS Safety Report 20066726 (Version 1)
Quarter: 2021Q4

REPORT INFORMATION
  Report Type: Spontaneous
  Country: FR (occurrence: FR)
  Receive Date: 20211115
  Receipt Date: 20211115
  Transmission Date: 20220303
  Serious: Yes (Hospitalization, Congenital Anomaly, Other)
  Sender: FDA-Public Use
  Company Number: FR-ABBVIE-21K-056-4158869-00

PATIENT
  Sex: Male
  Weight: 2.75 kg

DRUGS (8)
  1. VALPROATE SODIUM [Suspect]
     Active Substance: VALPROATE SODIUM
     Indication: Maternal exposure timing unspecified
     Route: 064
  2. CLOBAZAM [Suspect]
     Active Substance: CLOBAZAM
     Indication: Maternal exposure timing unspecified
     Route: 064
  3. ASPIRIN DL-LYSINE [Suspect]
     Active Substance: ASPIRIN DL-LYSINE
     Indication: Maternal exposure timing unspecified
     Route: 064
  4. LEVETIRACETAM [Suspect]
     Active Substance: LEVETIRACETAM
     Indication: Maternal exposure timing unspecified
     Route: 064
  5. FOLIC ACID [Concomitant]
     Active Substance: FOLIC ACID
     Indication: Maternal exposure timing unspecified
     Route: 064
  6. FOLIC ACID [Concomitant]
     Active Substance: FOLIC ACID
     Indication: Maternal exposure timing unspecified
     Route: 064
  7. NIFEDIPINE [Concomitant]
     Active Substance: NIFEDIPINE
     Indication: Maternal exposure timing unspecified
     Route: 064
  8. CELESTENE [Concomitant]
     Indication: Maternal exposure timing unspecified
     Route: 064

REACTIONS (50)
  - Bronchiolitis [Recovered/Resolved]
  - Anxiety disorder [Unknown]
  - Neonatal respiratory distress syndrome [Unknown]
  - Congenital infection [Unknown]
  - Clonic convulsion [Unknown]
  - Foetal anticonvulsant syndrome [Unknown]
  - Autism spectrum disorder [Unknown]
  - Syncope [Unknown]
  - Ear malformation [Unknown]
  - Intellectual disability [Unknown]
  - Congenital hand malformation [Unknown]
  - Discomfort [Unknown]
  - Regurgitation [Unknown]
  - Dyspraxia [Unknown]
  - Hand-eye coordination impaired [Unknown]
  - Dysmorphism [Unknown]
  - Motor dysfunction [Unknown]
  - Psychomotor hyperactivity [Unknown]
  - Cognitive disorder [Unknown]
  - Speech disorder developmental [Unknown]
  - Disturbance in attention [Unknown]
  - Dyslexia [Unknown]
  - Epilepsy [Unknown]
  - Dysgraphia [Unknown]
  - Psychomotor retardation [Unknown]
  - Joint laxity [Unknown]
  - Oppositional defiant disorder [Unknown]
  - Attention deficit hyperactivity disorder [Unknown]
  - Cardiac murmur functional [Unknown]
  - Abnormal behaviour [Unknown]
  - Impulsive behaviour [Unknown]
  - Behaviour disorder [Unknown]
  - Nasopharyngitis [Recovered/Resolved]
  - Laryngitis [Recovered/Resolved]
  - Tracheitis [Recovered/Resolved]
  - Head injury [Unknown]
  - Fall [Unknown]
  - Malaise [Unknown]
  - Arthropathy [Unknown]
  - School refusal [Unknown]
  - Frustration tolerance decreased [Unknown]
  - Periorbital oedema [Unknown]
  - Withdrawal syndrome [Unknown]
  - Nervousness [Unknown]
  - Irritability [Unknown]
  - Anger [Unknown]
  - Aggression [Recovered/Resolved]
  - Vomiting [Unknown]
  - Agitation [Recovered/Resolved]
  - Foetal exposure during pregnancy [Unknown]

NARRATIVE: CASE EVENT DATE: 20110101
